FAERS Safety Report 6543244-5 (Version None)
Quarter: 2010Q1

REPORT INFORMATION
  Report Type: 
  Country: None (occurrence: None)
  Receive Date: 20100120
  Receipt Date: 20100108
  Transmission Date: 20100710
  Serious: Yes (Hospitalization)
  Sender: FDA-Public Use
  Company Number: US-JNJFOC-20100104631

PATIENT
  Age: 67 Year
  Sex: Female
  Weight: 77.11 kg

DRUGS (13)
  1. TYLENOL (CAPLET) [Suspect]
     Indication: HEADACHE
     Route: 048
  2. TYLENOL (CAPLET) [Suspect]
     Indication: ARTHRITIS
     Route: 048
  3. NATURAL THYROID MEDICATION [Concomitant]
     Indication: THYROID DISORDER
     Dosage: ABOUT 5 YEARS
     Route: 048
  4. SINGULAIR [Concomitant]
     Indication: DYSPNOEA
     Dosage: ABOUT 5 YEARS
     Route: 048
  5. SYMBICORT [Concomitant]
     Indication: DYSPNOEA
     Dosage: ABOUT 5 YEARS
     Route: 055
  6. ALBUTEROL [Concomitant]
     Indication: DYSPNOEA
     Route: 055
  7. MOBIC [Concomitant]
     Indication: ARTHRITIS
     Route: 048
  8. EXFORGE [Concomitant]
     Indication: HYPERTENSION
     Dosage: ABOUT 5 YEARS
     Route: 048
  9. PAXIL [Concomitant]
     Dosage: ABOUT 5 YEARS
     Route: 048
  10. PRILOSEC [Concomitant]
     Indication: GASTROINTESTINAL DISORDER
     Dosage: ABOUT 5 YEARS
     Route: 048
  11. BENTYL [Concomitant]
     Indication: GASTROINTESTINAL DISORDER
     Dosage: ABOUT 5 YEARS
     Route: 048
  12. CRESTOR [Concomitant]
     Indication: BLOOD CHOLESTEROL INCREASED
     Route: 048
  13. COQ10 [Concomitant]
     Indication: ARTERIAL DISORDER
     Dosage: ABOUT 5 YEARS
     Route: 003

REACTIONS (4)
  - BACK PAIN [None]
  - DIARRHOEA [None]
  - PRODUCT QUALITY ISSUE [None]
  - VOMITING [None]
